FAERS Safety Report 17083790 (Version 2)
Quarter: 2022Q2

REPORT INFORMATION
  Report Type: Report from Study
  Country: DE (occurrence: DE)
  Receive Date: 20191127
  Receipt Date: 20220428
  Transmission Date: 20220721
  Serious: Yes (Other)
  Sender: FDA-Public Use
  Company Number: DE-NOVARTISPH-NVSC2019DE046756

PATIENT
  Sex: Female

DRUGS (4)
  1. GILENYA [Suspect]
     Active Substance: FINGOLIMOD HYDROCHLORIDE
     Indication: Multiple sclerosis
     Dosage: 0.5 MG, QD
     Route: 048
     Dates: start: 20181004
  2. OPIPRAMOL [Concomitant]
     Active Substance: OPIPRAMOL
     Indication: Depression
     Dosage: 100 MG
     Route: 065
  3. OPIPRAMOL [Concomitant]
     Active Substance: OPIPRAMOL
     Indication: Adjustment disorder
  4. ASPIRIN [Concomitant]
     Active Substance: ASPIRIN
     Indication: Peripheral arterial occlusive disease
     Dosage: 100 MG
     Route: 065

REACTIONS (2)
  - Impaired gastric emptying [Unknown]
  - Abdominal pain upper [Recovered/Resolved]

NARRATIVE: CASE EVENT DATE: 20191026
